FAERS Safety Report 4982492-2 (Version None)
Quarter: 2006Q2

REPORT INFORMATION
  Report Type: 
  Country: None (occurrence: None)
  Receive Date: 20060419
  Receipt Date: 20060406
  Transmission Date: 20061013
  Serious: Yes (Other)
  Sender: FDA-Public Use
  Company Number: 2006049212

PATIENT
  Age: 10 Year
  Sex: Female

DRUGS (6)
  1. DILANTIN [Suspect]
     Indication: CONVULSION
     Dosage: 1.2 MG (0.4 MG, 3 IN 1 D)
     Dates: start: 19960101
  2. TRILEPTAL [Concomitant]
  3. CLONAZEPAM [Concomitant]
  4. ZONEGRAN [Concomitant]
  5. MIRALAX [Concomitant]
  6. FEXOFENADINE HCL [Concomitant]

REACTIONS (5)
  - CONVULSION [None]
  - GASTROSTOMY [None]
  - GINGIVAL HYPERPLASIA [None]
  - HYPERSOMNIA [None]
  - TOOTH DISORDER [None]
